FAERS Safety Report 9084035 (Version 2)
Quarter: 2014Q1

REPORT INFORMATION
  Report Type: Spontaneous
  Country: NZ (occurrence: NZ)
  Receive Date: 20130218
  Receipt Date: 20140306
  Transmission Date: 20141002
  Serious: Yes (Death, Other)
  Sender: FDA-Public Use
  Company Number: PHHY2013NZ014051

PATIENT
  Age: 43 Year
  Sex: Female

DRUGS (20)
  1. ESTRADIOL [Suspect]
     Indication: HORMONE REPLACEMENT THERAPY
     Dosage: 2 MG, BID
  2. ESTRADIOL [Suspect]
     Dosage: UNK UKN, UNK
  3. CYPROTERONE [Suspect]
     Indication: HORMONE REPLACEMENT THERAPY
     Dosage: UNK UKN, UNK
     Dates: start: 1995, end: 2002
  4. CYPROTERONE [Suspect]
     Dosage: 50 MG, UNK
     Dates: start: 2005, end: 2006
  5. SPIRONOLACTONE [Suspect]
     Indication: HORMONE REPLACEMENT THERAPY
     Dosage: 200 MG, QD
     Dates: start: 2006
  6. DOXEPIN [Suspect]
     Dosage: UNK UKN, UNK
  7. RISPERIDONE [Suspect]
     Dosage: UNK UKN, UNK
  8. QUETIAPINE [Suspect]
     Dosage: UNK UKN, UNK
  9. AMISULPRIDE [Suspect]
     Dosage: UNK UKN, UNK
     Dates: start: 201005
  10. OLANZAPINE [Suspect]
  11. PACLITAXEL [Suspect]
     Indication: INVASIVE DUCTAL BREAST CARCINOMA
     Dosage: UNK UKN, UNK
  12. DOXORUBICIN [Suspect]
     Indication: INVASIVE DUCTAL BREAST CARCINOMA
     Dosage: UNK UKN, UNK
  13. CONJUGATED ESTROGENS [Suspect]
     Indication: HORMONE REPLACEMENT THERAPY
     Dosage: UNK UKN, UNK
     Dates: start: 1995, end: 2002
  14. CONJUGATED ESTROGENS [Suspect]
     Dosage: UNK
     Dates: start: 2005
  15. METHOTRIMEPRAZINE [Suspect]
     Dosage: UNK UKN, UNK
  16. CYCLOPHOSPHAMIDE [Suspect]
     Indication: INVASIVE DUCTAL BREAST CARCINOMA
     Dosage: UNK UKN, UNK
  17. FLUOXETINE [Concomitant]
     Dosage: UNK UKN, UNK
  18. ANTIBIOTICS [Concomitant]
     Dosage: UNK UKN, UNK
  19. CLONAZEPAM [Concomitant]
     Dosage: UNK UKN, UNK
  20. ZOPICLONE [Concomitant]

REACTIONS (9)
  - Overdose [Fatal]
  - Invasive ductal breast carcinoma [Unknown]
  - Breast pain [Unknown]
  - Breast mass [Unknown]
  - Erythema [Unknown]
  - Metastases to bone [Unknown]
  - Chest pain [Unknown]
  - Metastases to liver [Unknown]
  - Breast cancer metastatic [Unknown]
